FAERS Safety Report 9844949 (Version 1)
Quarter: 2014Q1

REPORT INFORMATION
  Report Type: Spontaneous
  Country: US (occurrence: None)
  Receive Date: 20140122
  Receipt Date: 20140122
  Transmission Date: 20141002
  Serious: Yes (Death)
  Sender: FDA-Public Use
  Company Number: B0959187A

PATIENT
  Age: 50 Year
  Sex: Male

DRUGS (3)
  1. BUPROPION HYDROCHLORIDE [Suspect]
     Dosage: UNK
  2. PROPRANOLOL HYDROCHLORIDE [Suspect]
     Dosage: UNK
  3. CITALOPRAM [Suspect]
     Dosage: UNK

REACTIONS (1)
  - Completed suicide [None]
